FAERS Safety Report 10665681 (Version 1)
Quarter: 2014Q4

REPORT INFORMATION
  Report Type: Spontaneous
  Country: US (occurrence: US)
  Receive Date: 20141219
  Receipt Date: 20141219
  Transmission Date: 20150529
  Serious: Yes (Other)
  Sender: FDA-Public Use
  Company Number: US-PFIZER INC-2014344240

PATIENT
  Age: 65 Year
  Sex: Male

DRUGS (2)
  1. XARELTO [Suspect]
     Active Substance: RIVAROXABAN
     Indication: ATRIAL FLUTTER
     Dosage: UNK
     Route: 048
     Dates: start: 201410
  2. ADVIL [Suspect]
     Active Substance: IBUPROFEN
     Indication: JOINT SWELLING
     Dosage: UNK
     Dates: start: 2014

REACTIONS (2)
  - Gout [Not Recovered/Not Resolved]
  - Erythema induratum [Not Recovered/Not Resolved]

NARRATIVE: CASE EVENT DATE: 2014
